FAERS Safety Report 24059293 (Version 3)
Quarter: 2024Q3

REPORT INFORMATION
  Report Type: Spontaneous
  Country: GR (occurrence: GR)
  Receive Date: 20240708
  Receipt Date: 20240711
  Transmission Date: 20241016
  Serious: Yes (Death, Other)
  Sender: GILEAD
  Company Number: GR-GILEAD-2024-0679431

PATIENT
  Age: 60 Year
  Sex: Male

DRUGS (1)
  1. TRODELVY [Suspect]
     Active Substance: SACITUZUMAB GOVITECAN-HZIY
     Indication: Transitional cell carcinoma metastatic
     Route: 065

REACTIONS (2)
  - Sepsis [Fatal]
  - Off label use [Fatal]

NARRATIVE: CASE EVENT DATE: 20240501
